FAERS Safety Report 5039891-2 (Version None)
Quarter: 2006Q2

REPORT INFORMATION
  Report Type: 
  Country: None (occurrence: None)
  Receive Date: 20060601
  Receipt Date: 20060109
  Transmission Date: 20061013
  Serious: No
  Sender: FDA-Public Use
  Company Number: 2006PV006838

PATIENT
  Age: 65 Year
  Sex: Male
  Weight: 134.7183 kg

DRUGS (17)
  1. BYETTA [Suspect]
     Indication: DIABETES MELLITUS NON-INSULIN-DEPENDENT
     Dosage: SEE IMAGE
     Route: 058
     Dates: start: 20051201, end: 20060201
  2. BYETTA [Suspect]
     Indication: DIABETES MELLITUS NON-INSULIN-DEPENDENT
     Dosage: SEE IMAGE
     Route: 058
     Dates: start: 20060201
  3. ORAL ANTIDIABETICS [Concomitant]
  4. VITAMINS [Concomitant]
  5. ASPIRIN [Concomitant]
  6. AMBIEN [Concomitant]
  7. LIPITOR [Concomitant]
  8. PROVENTIL [Concomitant]
  9. BENICAR [Concomitant]
  10. METOLAZONE [Concomitant]
  11. ACTOS [Concomitant]
  12. TRICOR [Concomitant]
  13. ROXICET [Concomitant]
  14. ALPRAZOLAM [Concomitant]
  15. OXYGEN [Concomitant]
  16. ARAVA [Concomitant]
  17. TUMS [Concomitant]

REACTIONS (6)
  - ABDOMINAL DISTENSION [None]
  - ABDOMINAL PAIN UPPER [None]
  - DECREASED APPETITE [None]
  - NAUSEA [None]
  - VOMITING [None]
  - WEIGHT DECREASED [None]
